FAERS Safety Report 11777157 (Version 1)
Quarter: 2015Q4

REPORT INFORMATION
  Report Type: Spontaneous
  Country: US (occurrence: None)
  Receive Date: 20151124
  Receipt Date: 20151124
  Transmission Date: 20160304
  Serious: No
  Sender: FDA-Public Use
  Company Number: None

PATIENT
  Sex: Female

DRUGS (1)
  1. HARVONI [Suspect]
     Active Substance: LEDIPASVIR\SOFOSBUVIR
     Indication: HEPATITIS C
     Dosage: 90-400MG  DAILY  PO
     Route: 048
     Dates: start: 20151002

REACTIONS (4)
  - Insomnia [None]
  - Diarrhoea [None]
  - Dysgeusia [None]
  - Fatigue [None]
